FAERS Safety Report 10234892 (Version 1)
Quarter: 2014Q1

REPORT INFORMATION
  Report Type: Spontaneous
  Country: US (occurrence: None)
  Receive Date: 20140306
  Receipt Date: 20140306
  Transmission Date: 20141002
  Serious: Yes (Other)
  Sender: FDA-Public Use
  Company Number: 163-21880-13051805

PATIENT
  Age: 70 Year
  Sex: Female
  Weight: 57.7 kg

DRUGS (11)
  1. REVLIMID (LENALIDOMIDE) (10 MILLIGRAM, CAPSULES) [Suspect]
     Indication: PLASMA CELL MYELOMA
     Dosage: 10 MG, 21 IN 28 D
     Route: 048
     Dates: start: 20130424, end: 20130510
  2. ACYCLOVIR (ACICLOVIR) (ACICLOVIR) [Concomitant]
  3. AMLODIPINE (AMLODIPINE) [Concomitant]
  4. ASPIRIN (ACETYLSALICYLIC ACID) [Concomitant]
  5. BETAMETHASONE DIPROPIONA (BETAMETHASONE DIPROPIONATE) [Concomitant]
  6. CASANTHRANOL-DOCUSATE SODIUM (PERI-COLACE) [Concomitant]
  7. CYCLOBENAZAPRINE (CYCLOBENAZAPRINE) [Concomitant]
  8. LOVASTATIN (LOVASTATIN) [Concomitant]
  9. OMEPRAZOLE (OMEPRAZOLE) [Concomitant]
  10. ONDANSETRON HCL (ONDANSETRON HYDROCHLORIDE) [Concomitant]
  11. HYDROCODONE/ACETAMINOPHEN (REMEDEINE) [Concomitant]

REACTIONS (2)
  - Compression fracture [None]
  - Pyrexia [None]
